FAERS Safety Report 8573889-2 (Version None)
Quarter: 2012Q3

REPORT INFORMATION
  Report Type: 
  Country: None (occurrence: None)
  Receive Date: 20120806
  Receipt Date: 20120409
  Transmission Date: 20120928
  Serious: No
  Sender: FDA-Public Use
  Company Number: US-GLAXOSMITHKLINE-A0972769A

PATIENT
  Age: 37 Year
  Sex: Female

DRUGS (7)
  1. AZMACORT [Suspect]
     Indication: ASTHMA
     Route: 055
  2. PEDIALYTE [Concomitant]
  3. FLUTICASONE PROPIONATE [Suspect]
     Indication: ASTHMA
     Dosage: 2PUFF TWICE PER DAY
     Route: 055
     Dates: start: 20120201, end: 20120301
  4. PROAIR HFA [Concomitant]
  5. FLUTICASONE PROPIONATE [Suspect]
     Dosage: 2PUFF TWICE PER DAY
     Route: 055
     Dates: start: 20120305, end: 20120401
  6. BENADRYL [Concomitant]
  7. PROAIR HFA [Suspect]
     Indication: ASTHMA
     Route: 055

REACTIONS (3)
  - VOMITING [None]
  - MALAISE [None]
  - NAUSEA [None]
